FAERS Safety Report 9345897 (Version 1)
Quarter: 2013Q2

REPORT INFORMATION
  Report Type: Report from Study
  Country: DE (occurrence: DE)
  Receive Date: 20130613
  Receipt Date: 20130613
  Transmission Date: 20140414
  Serious: Yes (Hospitalization)
  Sender: FDA-Public Use
  Company Number: DE-ROCHE-1185813

PATIENT
  Age: 54 Year
  Sex: Female
  Weight: 80.5 kg

DRUGS (3)
  1. BEVACIZUMAB [Suspect]
     Indication: BREAST CANCER
     Route: 042
     Dates: start: 20120918, end: 20130108
  2. PACLITAXEL [Suspect]
     Indication: BREAST CANCER
     Route: 042
     Dates: start: 20120918, end: 20130115
  3. DENOSUMAB [Suspect]
     Indication: PROPHYLAXIS
     Route: 058
     Dates: start: 20120918, end: 20121220

REACTIONS (5)
  - Pyrexia [Recovered/Resolved]
  - Bronchitis [Recovered/Resolved]
  - C-reactive protein increased [Recovered/Resolved]
  - General physical health deterioration [Recovered/Resolved]
  - Pyrexia [Recovered/Resolved]
